FAERS Safety Report 4301531-5 (Version None)
Quarter: 2004Q1

REPORT INFORMATION
  Report Type: 
  Country: None (occurrence: None)
  Receive Date: 20040223
  Receipt Date: 20040213
  Transmission Date: 20041129
  Serious: Yes (Other)
  Sender: FDA-Public Use
  Company Number: 200412170GDDC

PATIENT
  Age: 49 Year
  Sex: Female
  Weight: 79.4 kg

DRUGS (7)
  1. ARAVA [Suspect]
     Indication: RHEUMATOID ARTHRITIS
     Route: 048
     Dates: start: 20010301, end: 20031101
  2. ANTIINFLAMMATORY/ANTIRHEUMATIC PRODUCTS [Suspect]
     Route: 058
  3. ALENDRONATE SODIUM [Concomitant]
     Route: 048
  4. THYROXINE [Concomitant]
     Dosage: DOSE: UNK
     Route: 048
  5. TRAMADOL [Concomitant]
     Dosage: DOSE: UNK
     Route: 048
  6. CELEBREX [Concomitant]
     Dosage: DOSE: UNK
  7. ANTIDEPRESSANTS [Concomitant]
     Dosage: DOSE: UNK
     Route: 048

REACTIONS (2)
  - DRUG INTERACTION [None]
  - NEUTROPENIA [None]
